FAERS Safety Report 7938577-1 (Version None)
Quarter: 2011Q4

REPORT INFORMATION
  Report Type: 
  Country: None (occurrence: None)
  Receive Date: 20111123
  Receipt Date: 20111114
  Transmission Date: 20120403
  Serious: Yes (Hospitalization)
  Sender: FDA-Public Use
  Company Number: US-ASTRAZENECA-2011SE63341

PATIENT
  Age: 60 Year
  Sex: Male
  Weight: 79.4 kg

DRUGS (5)
  1. LISINOPRIL [Concomitant]
     Indication: BLOOD PRESSURE ABNORMAL
     Route: 048
  2. CLIDINIUM AND CHLORDIAZEPOXIDE [Concomitant]
     Indication: MUSCLE SPASMS
     Route: 048
     Dates: start: 20100101
  3. NEXIUM [Suspect]
     Indication: GASTROOESOPHAGEAL REFLUX DISEASE
     Route: 048
     Dates: start: 19910101
  4. ZOLPIDEM TARTRATE [Concomitant]
     Indication: SLEEP DISORDER
     Route: 048
     Dates: start: 20100101
  5. ACIPHEX [Concomitant]
     Indication: GASTROOESOPHAGEAL REFLUX DISEASE
     Route: 048
     Dates: start: 20110101

REACTIONS (4)
  - PANCREATIC ENZYMES INCREASED [None]
  - MALAISE [None]
  - ABDOMINAL PAIN [None]
  - GASTROINTESTINAL NEOPLASM [None]
